FAERS Safety Report 4406537-3 (Version None)
Quarter: 2004Q3

REPORT INFORMATION
  Report Type: 
  Country: None (occurrence: None)
  Receive Date: 20040723
  Receipt Date: 20040116
  Transmission Date: 20050211
  Serious: Yes (Hospitalization)
  Sender: FDA-Public Use
  Company Number: NL-ROCHE-356301

PATIENT
  Age: 47 Year
  Sex: Female

DRUGS (44)
  1. MYCOPHENOLATE MOFETIL [Suspect]
     Route: 065
     Dates: start: 20031205, end: 20031205
  2. MYCOPHENOLATE MOFETIL [Suspect]
     Route: 065
     Dates: start: 20031206, end: 20040115
  3. MYCOPHENOLATE MOFETIL [Suspect]
     Route: 065
     Dates: start: 20040129, end: 20040205
  4. MYCOPHENOLATE MOFETIL [Suspect]
     Route: 065
     Dates: start: 20040205, end: 20040213
  5. MYCOPHENOLATE MOFETIL [Suspect]
     Route: 065
     Dates: start: 20040213, end: 20040307
  6. MYCOPHENOLATE MOFETIL [Suspect]
     Route: 065
     Dates: start: 20040308, end: 20040328
  7. MYCOPHENOLATE MOFETIL [Suspect]
     Route: 065
     Dates: start: 20040329, end: 20040527
  8. MYCOPHENOLATE MOFETIL [Suspect]
     Route: 065
     Dates: start: 20040528
  9. CYCLOSPORINE [Suspect]
     Route: 065
     Dates: start: 20031205, end: 20031210
  10. CYCLOSPORINE [Suspect]
     Route: 065
     Dates: start: 20031211, end: 20031212
  11. CYCLOSPORINE [Suspect]
     Route: 065
     Dates: start: 20031213, end: 20031223
  12. CYCLOSPORINE [Suspect]
     Route: 065
     Dates: start: 20031224, end: 20040107
  13. CYCLOSPORINE [Suspect]
     Route: 065
     Dates: start: 20040108, end: 20040114
  14. CYCLOSPORINE [Suspect]
     Dosage: POSSIBILITY FOR ORAL INTAKE
     Route: 065
     Dates: start: 20040126, end: 20040202
  15. CYCLOSPORINE [Suspect]
     Route: 065
     Dates: start: 20040203, end: 20040301
  16. CYCLOSPORINE [Suspect]
     Route: 065
     Dates: start: 20040302, end: 20040527
  17. CYCLOSPORINE [Suspect]
     Route: 065
     Dates: start: 20040528
  18. CYCLOSPORINE [Suspect]
     Dosage: CONTINUOUS 24 HOUR IV
     Route: 042
     Dates: start: 20040115, end: 20040125
  19. PREDNISOLONE [Suspect]
     Route: 065
     Dates: start: 20031205, end: 20031207
  20. PREDNISOLONE [Suspect]
     Route: 065
     Dates: start: 20040301, end: 20040524
  21. PREDNISONE [Suspect]
     Route: 065
     Dates: start: 20031208, end: 20031209
  22. PREDNISONE [Suspect]
     Route: 065
     Dates: start: 20031210, end: 20031219
  23. PREDNISONE [Suspect]
     Dosage: REPORTED AS 15 MG ONCE A DAY 10 MG AND ONCE A DAY 5 MG.
     Route: 065
     Dates: start: 20031220, end: 20040107
  24. PREDNISONE [Suspect]
     Route: 065
     Dates: start: 20040108, end: 20040111
  25. PREDNISONE [Suspect]
     Route: 065
     Dates: start: 20040112, end: 20040124
  26. PREDNISONE [Suspect]
     Dosage: REPORTED AS 15 MG 10 MG ONCE A DAY AND 5 MG ONCE A DAY.
     Route: 065
     Dates: start: 20040125, end: 20040127
  27. PREDNISONE [Suspect]
     Route: 065
     Dates: start: 20040128, end: 20040229
  28. PREDNISONE [Suspect]
     Route: 065
     Dates: start: 20040525, end: 20040620
  29. PREDNISONE [Suspect]
     Route: 065
     Dates: start: 20040621
  30. NIFEDIPINE [Concomitant]
     Indication: HYPERTENSION
     Dosage: STOPPED BETWEEN THE 17 DEC AND 23 DEC 2003.
     Dates: start: 20031215, end: 20040102
  31. ATENOLOL [Concomitant]
     Indication: HYPERTENSION
     Dates: start: 20031217
  32. AMLODIPINE [Concomitant]
     Indication: HYPERTENSION
     Dates: start: 20040116
  33. MIXTARD HUMAN 70/30 [Concomitant]
     Dates: start: 19840601, end: 20040602
  34. ACTRAPID [Concomitant]
     Dates: start: 20031205, end: 20031208
  35. CEFTAZIDIM [Concomitant]
     Indication: BACTERIAL INFECTION
     Dates: start: 20031205, end: 20031208
  36. FUROSEMIDE [Concomitant]
     Dates: start: 20040209, end: 20040301
  37. FUCITHALMIC [Concomitant]
     Indication: CONJUNCTIVITIS
     Dates: start: 20040216, end: 20040329
  38. CEFUROXIM [Concomitant]
     Indication: BRONCHOPNEUMONIA
     Dates: start: 20031220, end: 20031223
  39. AUGMENTIN '250' [Concomitant]
     Indication: BRONCHOPNEUMONIA
     Dates: start: 20031224, end: 20040101
  40. GANCICLOVIR [Concomitant]
     Route: 042
     Dates: start: 20040112, end: 20040130
  41. VALGANCICLOVIR [Concomitant]
     Route: 048
     Dates: start: 20040131, end: 20040216
  42. COTRIMOXAZOLE [Concomitant]
     Dates: start: 20040112, end: 20040120
  43. PENICILLIN [Concomitant]
     Dates: start: 20040113, end: 20040130
  44. ZESTORETIC [Concomitant]
     Dates: start: 20040301, end: 20040330

REACTIONS (16)
  - ANAEMIA [None]
  - BACTERIAL INFECTION [None]
  - BLOOD CREATININE ABNORMAL [None]
  - BLOOD CREATININE INCREASED [None]
  - BRONCHOPNEUMONIA [None]
  - CARDIAC DISORDER [None]
  - CONJUNCTIVITIS [None]
  - CYTOMEGALOVIRUS INFECTION [None]
  - DEHYDRATION [None]
  - DIABETES MELLITUS INADEQUATE CONTROL [None]
  - DIARRHOEA [None]
  - FLUID OVERLOAD [None]
  - INTERSTITIAL LUNG DISEASE [None]
  - OEDEMA PERIPHERAL [None]
  - PNEUMONIA STREPTOCOCCAL [None]
  - WHITE BLOOD CELL COUNT INCREASED [None]
